FAERS Safety Report 10424908 (Version 1)
Quarter: 2014Q3

REPORT INFORMATION
  Report Type: Spontaneous
  Country: US (occurrence: None)
  Receive Date: 20140725
  Receipt Date: 20140725
  Transmission Date: 20150326
  Serious: No
  Sender: FDA-Public Use
  Company Number: AP356-00712-SPO-US

PATIENT
  Age: 52 Year
  Sex: Female
  Weight: 122 kg

DRUGS (5)
  1. BELVIQ [Suspect]
     Active Substance: LORCASERIN HYDROCHLORIDE
     Indication: WEIGHT DECREASED
     Route: 048
     Dates: start: 20140430, end: 20140430
  2. EXFORGE (AMLODIPINE W/ VALSARTAN) [Concomitant]
  3. CARVEDILOL. [Concomitant]
     Active Substance: CARVEDILOL
  4. CLONIDINE. [Concomitant]
     Active Substance: CLONIDINE
  5. SPIRONOLACTONE. [Concomitant]
     Active Substance: SPIRONOLACTONE

REACTIONS (4)
  - Cough [None]
  - Muscle spasms [None]
  - Genital rash [None]
  - Rash pruritic [None]

NARRATIVE: CASE EVENT DATE: 20140430
